FAERS Safety Report 13851266 (Version 1)
Quarter: 2017Q3

REPORT INFORMATION
  Report Type: Spontaneous
  Country: JP (occurrence: JP)
  Receive Date: 20170810
  Receipt Date: 20170810
  Transmission Date: 20171127
  Serious: Yes (Other)
  Sender: FDA-Public Use
  Company Number: JP-ROCHE-1974528

PATIENT
  Sex: Male

DRUGS (27)
  1. AFLIBERCEPT [Concomitant]
     Active Substance: AFLIBERCEPT
     Route: 031
     Dates: start: 20161128
  2. LUCENTIS [Suspect]
     Active Substance: RANIBIZUMAB
     Indication: POLYPOIDAL CHOROIDAL VASCULOPATHY
     Route: 031
     Dates: start: 20120523
  3. AFLIBERCEPT [Concomitant]
     Active Substance: AFLIBERCEPT
     Route: 031
     Dates: start: 20130802
  4. AFLIBERCEPT [Concomitant]
     Active Substance: AFLIBERCEPT
     Route: 031
     Dates: start: 20131002
  5. AFLIBERCEPT [Concomitant]
     Active Substance: AFLIBERCEPT
     Route: 031
     Dates: start: 20130408
  6. AFLIBERCEPT [Concomitant]
     Active Substance: AFLIBERCEPT
     Route: 031
     Dates: start: 20140613
  7. AFLIBERCEPT [Concomitant]
     Active Substance: AFLIBERCEPT
     Route: 031
     Dates: start: 20160530
  8. LUCENTIS [Suspect]
     Active Substance: RANIBIZUMAB
     Route: 031
     Dates: start: 20120720
  9. AFLIBERCEPT [Concomitant]
     Active Substance: AFLIBERCEPT
     Route: 031
     Dates: start: 20140310
  10. AFLIBERCEPT [Concomitant]
     Active Substance: AFLIBERCEPT
     Route: 031
     Dates: start: 20151118
  11. AFLIBERCEPT [Concomitant]
     Active Substance: AFLIBERCEPT
     Route: 031
     Dates: start: 20160916
  12. AFLIBERCEPT [Concomitant]
     Active Substance: AFLIBERCEPT
     Route: 031
     Dates: start: 20130104
  13. AFLIBERCEPT [Concomitant]
     Active Substance: AFLIBERCEPT
     Route: 031
     Dates: start: 20130204
  14. AFLIBERCEPT [Concomitant]
     Active Substance: AFLIBERCEPT
     Route: 031
     Dates: start: 20150817
  15. AFLIBERCEPT [Concomitant]
     Active Substance: AFLIBERCEPT
     Route: 031
     Dates: start: 20160808
  16. LUCENTIS [Suspect]
     Active Substance: RANIBIZUMAB
     Route: 031
     Dates: start: 20121026, end: 20121026
  17. AFLIBERCEPT [Concomitant]
     Active Substance: AFLIBERCEPT
     Route: 031
     Dates: start: 20141121
  18. AFLIBERCEPT [Concomitant]
     Active Substance: AFLIBERCEPT
     Route: 031
     Dates: start: 20160311
  19. LUCENTIS [Suspect]
     Active Substance: RANIBIZUMAB
     Route: 031
     Dates: start: 20120622
  20. AFLIBERCEPT [Concomitant]
     Active Substance: AFLIBERCEPT
     Indication: POLYPOIDAL CHOROIDAL VASCULOPATHY
     Route: 031
     Dates: start: 20121205
  21. AFLIBERCEPT [Concomitant]
     Active Substance: AFLIBERCEPT
     Route: 031
     Dates: start: 20131209
  22. AFLIBERCEPT [Concomitant]
     Active Substance: AFLIBERCEPT
     Route: 031
     Dates: start: 20150216
  23. AFLIBERCEPT [Concomitant]
     Active Substance: AFLIBERCEPT
     Route: 031
     Dates: start: 20130603
  24. AFLIBERCEPT [Concomitant]
     Active Substance: AFLIBERCEPT
     Route: 031
     Dates: start: 20140827
  25. AFLIBERCEPT [Concomitant]
     Active Substance: AFLIBERCEPT
     Route: 031
     Dates: start: 20150518
  26. AFLIBERCEPT [Concomitant]
     Active Substance: AFLIBERCEPT
     Route: 031
     Dates: start: 20160115
  27. AFLIBERCEPT [Concomitant]
     Active Substance: AFLIBERCEPT
     Route: 031
     Dates: start: 20170118

REACTIONS (5)
  - Polypoidal choroidal vasculopathy [Unknown]
  - Therapeutic response decreased [Unknown]
  - Retinal detachment [Unknown]
  - Macular fibrosis [Unknown]
  - Detachment of retinal pigment epithelium [Unknown]

NARRATIVE: CASE EVENT DATE: 20121018
